FAERS Safety Report 17067525 (Version 1)
Quarter: 2019Q4

REPORT INFORMATION
  Report Type: Report from Study
  Country: CA (occurrence: CA)
  Receive Date: 20191122
  Receipt Date: 20191122
  Transmission Date: 20200122
  Serious: Yes (Other)
  Sender: FDA-Public Use
  Company Number: CA-BRISTOL-MYERS SQUIBB COMPANY-BMS-2019-083495

PATIENT
  Age: 60 Year
  Sex: Male

DRUGS (1)
  1. NIVOLUMAB [Suspect]
     Active Substance: NIVOLUMAB
     Indication: MALIGNANT MELANOMA
     Dosage: 480 MILLIGRAM, Q4WK
     Route: 042
     Dates: start: 20190404

REACTIONS (11)
  - Vomiting [Unknown]
  - Malaise [Recovering/Resolving]
  - Fatigue [Recovering/Resolving]
  - Decreased appetite [Unknown]
  - Somnolence [Recovering/Resolving]
  - Appetite disorder [Recovering/Resolving]
  - Respiratory tract infection [Unknown]
  - Depression [Unknown]
  - Weight decreased [Unknown]
  - Nausea [Unknown]
  - Anxiety [Unknown]

NARRATIVE: CASE EVENT DATE: 20191017
